FAERS Safety Report 18666040 (Version 1)
Quarter: 2020Q4

REPORT INFORMATION
  Report Type: Spontaneous
  Country: GB (occurrence: GB)
  Receive Date: 20201226
  Receipt Date: 20201226
  Transmission Date: 20210114
  Serious: Yes (Other)
  Sender: FDA-Public Use
  Company Number: GB-TEVA-2020-GB-1861421

PATIENT
  Age: 15 Year
  Sex: Female
  Weight: 55 kg

DRUGS (2)
  1. CHINESE HERBS [Concomitant]
     Active Substance: HERBALS
  2. DOXYCYCLINE. [Suspect]
     Active Substance: DOXYCYCLINE
     Indication: INFECTED BITE
     Dosage: 200 MG
     Route: 048
     Dates: start: 20201113, end: 20201126

REACTIONS (5)
  - Initial insomnia [Unknown]
  - Panic attack [Unknown]
  - Crying [Unknown]
  - Mood swings [Recovering/Resolving]
  - Mood altered [Not Recovered/Not Resolved]

NARRATIVE: CASE EVENT DATE: 20201115
